FAERS Safety Report 5674704-7 (Version None)
Quarter: 2008Q1

REPORT INFORMATION
  Report Type: 
  Country: None (occurrence: None)
  Receive Date: 20080320
  Receipt Date: 20080317
  Transmission Date: 20080703
  Serious: Yes (Hospitalization)
  Sender: FDA-Public Use
  Company Number: B0513233A

PATIENT
  Age: 55 Year
  Sex: Female

DRUGS (2)
  1. ELONTRIL [Suspect]
     Indication: BIPOLAR DISORDER
     Dosage: 300MG PER DAY
     Route: 048
  2. DEPAKENE [Suspect]
     Indication: BIPOLAR DISORDER
     Dosage: 1500MG PER DAY
     Route: 048

REACTIONS (3)
  - CONVULSION [None]
  - HYPOTONIA [None]
  - LOSS OF CONSCIOUSNESS [None]
